FAERS Safety Report 4732843-9 (Version None)
Quarter: 2005Q3

REPORT INFORMATION
  Report Type: 
  Country: None (occurrence: None)
  Receive Date: 20050801
  Receipt Date: 20050718
  Transmission Date: 20060218
  Serious: Yes (Hospitalization)
  Sender: FDA-Public Use
  Company Number: TNZFR200500067

PATIENT
  Age: 78 Year
  Sex: Male
  Weight: 91 kg

DRUGS (7)
  1. INNOHEP [Suspect]
     Dosage: 18000 IU (18000 IU, ONCE DAILY), SUBCUTANEOUS
     Route: 058
     Dates: start: 20050110
  2. PREVISCAN (FLUINDIONE) [Suspect]
     Dosage: 1 DOSAGE FORMS, ORAL
     Route: 048
     Dates: end: 20050125
  3. CORDARONE [Suspect]
     Indication: ATRIAL FLUTTER
     Dosage: 200 MG, ORAL
     Route: 048
     Dates: start: 20050110
  4. AUGMENTIN '125' [Suspect]
     Indication: LUNG DISORDER
     Dosage: 3 GM (1 GM, THREE TIMES DAILY), ORAL
     Route: 048
     Dates: start: 20050110, end: 20050120
  5. ATROVENT [Concomitant]
  6. FLIXOTIDE (FLUTICASONE PROPIONATE) [Concomitant]
  7. ACTRAPID (INSULIN HUMAN) [Concomitant]

REACTIONS (4)
  - CARDIAC TAMPONADE [None]
  - DRUG INTERACTION [None]
  - INTERNATIONAL NORMALISED RATIO INCREASED [None]
  - OVERDOSE [None]
